FAERS Safety Report 17614511 (Version 5)
Quarter: 2020Q4

REPORT INFORMATION
  Report Type: Report from Study
  Country: None (occurrence: US)
  Receive Date: 20200402
  Receipt Date: 20201224
  Transmission Date: 20210113
  Serious: Yes (Hospitalization, Other)
  Sender: FDA-Public Use
  Company Number: US-ABBVIE-20K-163-3344413-00

PATIENT
  Age: 73 Year
  Sex: Female
  Weight: 52.21 kg

DRUGS (3)
  1. HUMIRA [Suspect]
     Active Substance: ADALIMUMAB
     Dosage: CF
     Route: 058
     Dates: end: 2020
  2. HUMIRA [Suspect]
     Active Substance: ADALIMUMAB
     Indication: RHEUMATOID ARTHRITIS
     Dosage: CF
     Route: 058
     Dates: start: 2017
  3. HUMIRA [Suspect]
     Active Substance: ADALIMUMAB
     Dosage: CF
     Route: 058
     Dates: start: 2020

REACTIONS (14)
  - Parosmia [Recovered/Resolved]
  - Fall [Recovered/Resolved]
  - Limb injury [Recovered/Resolved]
  - Gastritis [Unknown]
  - Osteoporosis [Unknown]
  - Unevaluable event [Unknown]
  - Exostosis [Recovering/Resolving]
  - COVID-19 [Recovered/Resolved]
  - Coeliac disease [Unknown]
  - Pneumonia [Recovered/Resolved]
  - Colitis microscopic [Recovered/Resolved]
  - Fibromyalgia [Unknown]
  - Spinal fracture [Recovered/Resolved]
  - Taste disorder [Recovered/Resolved]

NARRATIVE: CASE EVENT DATE: 202002
